FAERS Safety Report 23751683 (Version 1)
Quarter: 2024Q2

REPORT INFORMATION
  Report Type: Spontaneous
  Country: US (occurrence: None)
  Receive Date: 20240416
  Receipt Date: 20240416
  Transmission Date: 20240716
  Serious: Yes (Other)
  Sender: FDA-Public Use
  Company Number: None

PATIENT
  Age: 47 Year
  Sex: Female
  Weight: 89.55 kg

DRUGS (1)
  1. SPRAVATO [Suspect]
     Active Substance: ESKETAMINE
     Indication: Major depression
     Dosage: OTHER FREQUENCY : 2X PER WEEK;?
     Route: 055
     Dates: start: 20240226

REACTIONS (2)
  - Heavy menstrual bleeding [None]
  - Intermenstrual bleeding [None]

NARRATIVE: CASE EVENT DATE: 20240226
